FAERS Safety Report 9988156 (Version 1)
Quarter: 2014Q1

REPORT INFORMATION
  Report Type: Spontaneous
  Country: SE (occurrence: SE)
  Receive Date: 20140308
  Receipt Date: 20140308
  Transmission Date: 20141002
  Serious: Yes (Hospitalization)
  Sender: FDA-Public Use
  Company Number: SE-009507513-1403SWE001127

PATIENT
  Age: 69 Year
  Sex: Female

DRUGS (1)
  1. OVESTERIN [Suspect]
     Dosage: UNITS: /MG
     Route: 067

REACTIONS (1)
  - Angina pectoris [Not Recovered/Not Resolved]
